FAERS Safety Report 8508975-6 (Version None)
Quarter: 2012Q3

REPORT INFORMATION
  Report Type: 
  Country: None (occurrence: None)
  Receive Date: 20120713
  Receipt Date: 20120711
  Transmission Date: 20120928
  Serious: Yes (Death, Hospitalization)
  Sender: FDA-Public Use
  Company Number: US-B.I. PHARMACEUTICALS,INC./RIDGEFIELD-2012-BP-15479BP

PATIENT
  Age: 78 Year
  Sex: Female

DRUGS (9)
  1. COLCHICINE [Concomitant]
  2. IMDUR [Concomitant]
  3. COREG [Concomitant]
  4. DILTIAZEM [Concomitant]
  5. ALLOPURINOL [Concomitant]
  6. PRADAXA [Suspect]
     Indication: ATRIAL FIBRILLATION
     Dates: start: 20120201
  7. LISINOPRIL [Concomitant]
  8. HALDOL [Concomitant]
  9. SERTRALINE HYDROCHLORIDE [Concomitant]

REACTIONS (7)
  - TOXICITY TO VARIOUS AGENTS [None]
  - BLOOD GLUCOSE DECREASED [None]
  - HYPOTENSION [None]
  - VIITH NERVE PARALYSIS [None]
  - DYSARTHRIA [None]
  - DYSPHAGIA [None]
  - INTERNATIONAL NORMALISED RATIO INCREASED [None]
